FAERS Safety Report 7082927-8 (Version None)
Quarter: 2010Q4

REPORT INFORMATION
  Report Type: 
  Country: None (occurrence: None)
  Receive Date: 20101104
  Receipt Date: 20101102
  Transmission Date: 20110411
  Serious: Yes (Death, Hospitalization, Other)
  Sender: FDA-Public Use
  Company Number: PHFR2010GB02569

PATIENT
  Sex: Female

DRUGS (4)
  1. CLOZARIL [Suspect]
     Indication: SCHIZOPHRENIA
     Dosage: 275 MG, QD
     Route: 048
     Dates: start: 20080424
  2. QVAR 40 [Concomitant]
     Dosage: 200 UG, BID
  3. SALBUTAMOL [Concomitant]
     Dosage: 2 DF, BID
  4. PARACETAMOL [Concomitant]
     Dosage: 1 G, QD

REACTIONS (6)
  - ABDOMINAL DISTENSION [None]
  - ASCITES [None]
  - DEATH [None]
  - NEUTROPHIL COUNT INCREASED [None]
  - PLATELET COUNT INCREASED [None]
  - WHITE BLOOD CELL COUNT INCREASED [None]
